FAERS Safety Report 8311400-1 (Version None)
Quarter: 2012Q2

REPORT INFORMATION
  Report Type: 
  Country: None (occurrence: None)
  Receive Date: 20120425
  Receipt Date: 20110811
  Transmission Date: 20120825
  Serious: No
  Sender: FDA-Public Use
  Company Number: US-MYLANLABS-2011S1016957

PATIENT
  Age: 78 Year
  Sex: Female
  Weight: 36.29 kg

DRUGS (3)
  1. DUONEB [Suspect]
     Route: 055
     Dates: start: 20110801
  2. DUONEB [Suspect]
     Route: 055
     Dates: start: 20110801, end: 20110801
  3. DUONEB [Suspect]
     Indication: DYSPNOEA
     Route: 055
     Dates: end: 20110801

REACTIONS (1)
  - DYSGEUSIA [None]
